FAERS Safety Report 20632241 (Version 1)
Quarter: 2022Q1

REPORT INFORMATION
  Report Type: Report from Study
  Country: JP (occurrence: JP)
  Receive Date: 20220324
  Receipt Date: 20220324
  Transmission Date: 20220424
  Serious: Yes (Other)
  Sender: FDA-Public Use
  Company Number: JP-002147023-PHJP2018JP008628

PATIENT

DRUGS (29)
  1. PASIREOTIDE [Suspect]
     Active Substance: PASIREOTIDE
     Indication: Acromegaly
     Dosage: 40 MILLIGRAM, MONTHLY
     Route: 030
     Dates: start: 20170124
  2. PASIREOTIDE [Suspect]
     Active Substance: PASIREOTIDE
     Dosage: 40 MILLIGRAM, MONTHLY
     Route: 030
     Dates: start: 20170228
  3. PASIREOTIDE [Suspect]
     Active Substance: PASIREOTIDE
     Dosage: 40 MILLIGRAM, MONTHLY
     Route: 030
     Dates: start: 20170328
  4. PASIREOTIDE [Suspect]
     Active Substance: PASIREOTIDE
     Dosage: 40 MILLIGRAM, MONTHLY
     Route: 030
     Dates: start: 20170425
  5. PASIREOTIDE [Suspect]
     Active Substance: PASIREOTIDE
     Dosage: 40 MILLIGRAM, MONTHLY
     Route: 030
     Dates: start: 20170523
  6. PASIREOTIDE [Suspect]
     Active Substance: PASIREOTIDE
     Dosage: 40 MILLIGRAM, MONTHLY
     Route: 030
     Dates: start: 20170627
  7. PASIREOTIDE [Suspect]
     Active Substance: PASIREOTIDE
     Dosage: 40 MILLIGRAM, MONTHLY
     Route: 030
     Dates: start: 20170725
  8. PASIREOTIDE [Suspect]
     Active Substance: PASIREOTIDE
     Dosage: 40 MILLIGRAM, MONTHLY
     Route: 030
     Dates: start: 20170829
  9. PASIREOTIDE [Suspect]
     Active Substance: PASIREOTIDE
     Dosage: 40 MILLIGRAM, MONTHLY
     Route: 030
     Dates: start: 20170926
  10. PASIREOTIDE [Suspect]
     Active Substance: PASIREOTIDE
     Dosage: 40 MILLIGRAM, MONTHLY
     Route: 030
     Dates: start: 20171024
  11. PASIREOTIDE [Suspect]
     Active Substance: PASIREOTIDE
     Dosage: 40 MILLIGRAM, MONTHLY
     Route: 030
     Dates: start: 20171128
  12. PASIREOTIDE [Suspect]
     Active Substance: PASIREOTIDE
     Dosage: 40 MILLIGRAM, MONTHLY
     Route: 030
     Dates: start: 20171226
  13. PASIREOTIDE [Suspect]
     Active Substance: PASIREOTIDE
     Dosage: 40 MILLIGRAM, MONTHLY
     Route: 030
     Dates: start: 20180123
  14. PASIREOTIDE [Suspect]
     Active Substance: PASIREOTIDE
     Dosage: 40 MILLIGRAM, MONTHLY
     Route: 030
     Dates: start: 20180220
  15. PASIREOTIDE [Suspect]
     Active Substance: PASIREOTIDE
     Dosage: 40 MILLIGRAM, MONTHLY
     Route: 030
     Dates: start: 20180320
  16. PASIREOTIDE [Suspect]
     Active Substance: PASIREOTIDE
     Dosage: 40 MILLIGRAM, MONTHLY
     Route: 030
     Dates: start: 20180409
  17. PASIREOTIDE [Suspect]
     Active Substance: PASIREOTIDE
     Dosage: 40 MILLIGRAM, MONTHLY
     Route: 030
     Dates: start: 20180522
  18. PASIREOTIDE [Suspect]
     Active Substance: PASIREOTIDE
     Dosage: 40 MILLIGRAM, MONTHLY
     Route: 030
     Dates: start: 20180619
  19. PASIREOTIDE [Suspect]
     Active Substance: PASIREOTIDE
     Dosage: 40 MILLIGRAM, MONTHLY
     Route: 030
     Dates: start: 20180717
  20. PASIREOTIDE [Suspect]
     Active Substance: PASIREOTIDE
     Dosage: 40 MILLIGRAM, MONTHLY
     Route: 030
     Dates: start: 20180814
  21. PASIREOTIDE [Suspect]
     Active Substance: PASIREOTIDE
     Dosage: 40 MILLIGRAM, MONTHLY
     Route: 030
     Dates: start: 20180911
  22. PASIREOTIDE [Suspect]
     Active Substance: PASIREOTIDE
     Dosage: 40 MILLIGRAM MONTHLY
     Route: 030
     Dates: start: 20181002
  23. PASIREOTIDE [Suspect]
     Active Substance: PASIREOTIDE
     Dosage: 40 MILLIGRAM, MONTHLY
     Route: 030
     Dates: start: 20181106
  24. PASIREOTIDE [Suspect]
     Active Substance: PASIREOTIDE
     Dosage: 40 MILLIGRAM, MONTHLY
     Route: 030
     Dates: start: 20181204
  25. PASIREOTIDE [Suspect]
     Active Substance: PASIREOTIDE
     Dosage: 40 MILLIGRAM, MONTHLY
     Route: 030
     Dates: start: 20190108
  26. PASIREOTIDE [Suspect]
     Active Substance: PASIREOTIDE
     Dosage: 40 MILLIGRAM, MONTHLY
     Route: 030
     Dates: start: 20190205
  27. TENELIGLIPTIN [Concomitant]
     Active Substance: TENELIGLIPTIN
     Indication: Diabetes mellitus
     Dosage: 20 MILLIGRAM, QD
     Route: 048
     Dates: start: 20170207
  28. PARLODEL [Concomitant]
     Active Substance: BROMOCRIPTINE MESYLATE
     Indication: Acromegaly
     Dosage: 7.5 MILLIGRAM
     Route: 048
     Dates: end: 20171023
  29. CABERGOLINE [Concomitant]
     Active Substance: CABERGOLINE
     Indication: Acromegaly
     Dosage: 0.25 MILLIGRAM
     Route: 048
     Dates: start: 20171024

REACTIONS (1)
  - Diabetes mellitus inadequate control [Not Recovered/Not Resolved]

NARRATIVE: CASE EVENT DATE: 20170207
